FAERS Safety Report 9580265 (Version 1)
Quarter: 2013Q3

REPORT INFORMATION
  Report Type: Spontaneous
  Country: US (occurrence: None)
  Receive Date: 20130916
  Receipt Date: 20130916
  Transmission Date: 20140515
  Serious: Yes (Other)
  Sender: FDA-Public Use
  Company Number: JPI-P-025211

PATIENT
  Age: 36 Year
  Sex: Female

DRUGS (5)
  1. XYREM [Suspect]
     Indication: CATAPLEXY
     Route: 048
     Dates: start: 20111121
  2. VITAMIN OMEGA 3 [Concomitant]
  3. VITMIN OMEGA 6 [Concomitant]
  4. VITAMIN OMEGA 9 [Concomitant]
  5. VITAMIN C [Concomitant]

REACTIONS (16)
  - Suicidal ideation [None]
  - Victim of abuse [None]
  - Animal bite [None]
  - Dermatillomania [None]
  - Anxiety [None]
  - Self-injurious ideation [None]
  - Trichotillomania [None]
  - Feeling abnormal [None]
  - Altered state of consciousness [None]
  - Pain [None]
  - Vaginal infection [None]
  - Genital pain [None]
  - Vaginal odour [None]
  - Thinking abnormal [None]
  - Fear [None]
  - Body dysmorphic disorder [None]
